FAERS Safety Report 16034390 (Version 1)
Quarter: 2019Q1

REPORT INFORMATION
  Report Type: Spontaneous
  Country: US (occurrence: US)
  Receive Date: 20190305
  Receipt Date: 20190305
  Transmission Date: 20190418
  Serious: Yes (Other)
  Sender: FDA-Public Use
  Company Number: US-HORMOSAN PHARMA GMBH-2019-01140

PATIENT
  Sex: Male

DRUGS (1)
  1. DULOXETINE DELAYED-RELEASE CAPSULES [Suspect]
     Active Substance: DULOXETINE
     Indication: NEUROPATHY PERIPHERAL
     Dosage: UNK
     Route: 065

REACTIONS (2)
  - Drug ineffective [Not Recovered/Not Resolved]
  - Impaired quality of life [Not Recovered/Not Resolved]
